FAERS Safety Report 14690400 (Version 1)
Quarter: 2018Q1

REPORT INFORMATION
  Report Type: Report from Study
  Country: US (occurrence: US)
  Receive Date: 20180328
  Receipt Date: 20180328
  Transmission Date: 20180509
  Serious: Yes (Death, Hospitalization)
  Sender: FDA-Public Use
  Company Number: US-ACTELION-A-US2016-131733

PATIENT
  Age: 59 Year
  Sex: Male
  Weight: 55.78 kg

DRUGS (4)
  1. VELETRI [Suspect]
     Active Substance: EPOPROSTENOL
     Dosage: 20 NG/KG, PER MIN
     Route: 042
  2. REVATIO [Suspect]
     Active Substance: SILDENAFIL CITRATE
     Indication: PRODUCT USED FOR UNKNOWN INDICATION
     Route: 065
  3. OPSUMIT [Suspect]
     Active Substance: MACITENTAN
     Indication: PULMONARY ARTERIAL HYPERTENSION
     Dosage: 10 MG, QD
     Route: 048
     Dates: start: 20160209
  4. VELETRI [Suspect]
     Active Substance: EPOPROSTENOL
     Indication: PULMONARY ARTERIAL HYPERTENSION
     Dosage: 16 NG/KG, PER MIN
     Route: 042
     Dates: start: 20151005

REACTIONS (23)
  - Device infusion issue [Recovering/Resolving]
  - Dizziness [Recovering/Resolving]
  - Fluid retention [Unknown]
  - Product physical consistency issue [Unknown]
  - Headache [Unknown]
  - Asthenia [Unknown]
  - Death [Fatal]
  - Pruritus [Unknown]
  - Abdominal discomfort [Unknown]
  - Sluggishness [Recovering/Resolving]
  - Erythema [Unknown]
  - Device alarm issue [Recovering/Resolving]
  - Device leakage [Recovered/Resolved]
  - Catheter placement [Unknown]
  - Pain [Unknown]
  - Feeling abnormal [Unknown]
  - Cold sweat [Unknown]
  - Malaise [Recovering/Resolving]
  - Fatigue [Recovering/Resolving]
  - Presyncope [Recovering/Resolving]
  - Pulmonary hypertension [Unknown]
  - Somnolence [Recovering/Resolving]
  - Diarrhoea [Recovering/Resolving]

NARRATIVE: CASE EVENT DATE: 201512
